FAERS Safety Report 9881625 (Version 1)
Quarter: 2014Q1

REPORT INFORMATION
  Report Type: Spontaneous
  Country: US (occurrence: US)
  Receive Date: 20140207
  Receipt Date: 20140207
  Transmission Date: 20141002
  Serious: Yes (Other)
  Sender: FDA-Public Use
  Company Number: US-PFIZER INC-2014033352

PATIENT
  Sex: Male

DRUGS (3)
  1. LYRICA [Suspect]
     Indication: NEUROPATHY PERIPHERAL
     Dosage: 600 MG, UNK
     Dates: start: 2004
  2. LYRICA [Suspect]
     Indication: FIBROMYALGIA
  3. OXYCODONE HYDROCHLORIDE [Suspect]
     Indication: FIBROMYALGIA
     Dosage: UNK, 3X/DAY

REACTIONS (2)
  - Abasia [Not Recovered/Not Resolved]
  - Somnolence [Unknown]
